FAERS Safety Report 9522669 (Version 1)
Quarter: 2013Q1

REPORT INFORMATION
  Report Type: Spontaneous
  Country: US (occurrence: None)
  Receive Date: 20130305
  Receipt Date: 20130305
  Transmission Date: 20140127
  Serious: Yes (Hospitalization, Other)
  Sender: FDA-Public Use
  Company Number: 163-21880-12070096

PATIENT
  Age: 77 Year
  Sex: Female

DRUGS (2)
  1. REVLIMID (LENALIDOMIDE) (CAPSULES) [Suspect]
     Indication: MYELODYSPLASTIC SYNDROME
     Dosage: 5 MG,  1 IN 1 D,  PO?11/  /2008 - TEMPORARILY INTERRUPTED
     Route: 048
     Dates: start: 200811
  2. PRBC (BLOOD CELLS, PACKED HUMAN) [Concomitant]

REACTIONS (2)
  - Pain [None]
  - Full blood count decreased [None]
